FAERS Safety Report 5374738-6 (Version None)
Quarter: 2007Q2

REPORT INFORMATION
  Report Type: 
  Country: None (occurrence: None)
  Receive Date: 20070629
  Receipt Date: 20070615
  Transmission Date: 20071010
  Serious: Yes (Other)
  Sender: FDA-Public Use
  Company Number: BR-BRISTOL-MYERS SQUIBB COMPANY-13822721

PATIENT
  Age: 47 Year
  Sex: Female

DRUGS (4)
  1. REYATAZ [Suspect]
     Route: 048
     Dates: start: 20070401
  2. TENOFOVIR [Concomitant]
     Route: 048
  3. LAMIVUDINE [Concomitant]
     Route: 048
  4. RITONAVIR [Concomitant]

REACTIONS (5)
  - DERMATITIS EXFOLIATIVE [None]
  - DRY SKIN [None]
  - EPIDERMOLYSIS [None]
  - PRURITUS [None]
  - SKIN EXFOLIATION [None]
